FAERS Safety Report 8037280 (Version 9)
Quarter: 2013Q4

REPORT INFORMATION
  Report Type: Report from Study
  Country: FR (occurrence: FR)
  Receive Date: 20110715
  Receipt Date: 20131015
  Transmission Date: 20140711
  Serious: Yes (Hospitalization, Other)
  Sender: FDA-Public Use
  Company Number: FR-ELI_LILLY_AND_COMPANY-FR201107000758

PATIENT
  Age: 65 Year
  Sex: Male

DRUGS (6)
  1. GEMCITABINE HYDROCHLORIDE [Suspect]
     Indication: NON-SMALL CELL LUNG CANCER
     Dosage: 2000 MG, UNK
     Route: 042
     Dates: start: 20110629, end: 20110629
  2. CISPLATIN [Suspect]
     Indication: NON-SMALL CELL LUNG CANCER
     Dosage: 120 MG, UNK
     Route: 042
     Dates: start: 20110629, end: 20110629
  3. INSULINE [Concomitant]
  4. RISIDON [Concomitant]
  5. AMLOR [Concomitant]
  6. PRIMPERAN [Concomitant]

REACTIONS (8)
  - Hypercreatininaemia [Not Recovered/Not Resolved]
  - Dehydration [Not Recovered/Not Resolved]
  - Haematemesis [Not Recovered/Not Resolved]
  - Renal failure acute [Not Recovered/Not Resolved]
  - Hyperglycaemia [Recovered/Resolved]
  - Hyperglycaemia [Recovering/Resolving]
  - Anaemia [Recovering/Resolving]
  - Hyponatraemia [Not Recovered/Not Resolved]
